FAERS Safety Report 4791699-9 (Version None)
Quarter: 2005Q4

REPORT INFORMATION
  Report Type: 
  Country: None (occurrence: None)
  Receive Date: 20051007
  Receipt Date: 20050913
  Transmission Date: 20060501
  Serious: Yes (Hospitalization)
  Sender: FDA-Public Use
  Company Number: ZA-GLAXOSMITHKLINE-B0394563A

PATIENT
  Age: 28 Year
  Sex: Female

DRUGS (1)
  1. BETAMOX [Suspect]
     Indication: PHARYNGITIS

REACTIONS (1)
  - INTRACRANIAL PRESSURE INCREASED [None]
